FAERS Safety Report 24724333 (Version 1)
Quarter: 2024Q4

REPORT INFORMATION
  Report Type: Spontaneous
  Country: US (occurrence: US)
  Receive Date: 20241212
  Receipt Date: 20241212
  Transmission Date: 20250114
  Serious: No
  Sender: SANOFI AVENTIS
  Company Number: US-SA-2024SA364122

PATIENT
  Sex: Female
  Weight: 78.18 kg

DRUGS (16)
  1. DUPIXENT [Suspect]
     Active Substance: DUPILUMAB
     Indication: Dermatitis atopic
     Dosage: 300 MG, QOW
     Route: 058
     Dates: start: 202110
  2. OPSUMIT [Concomitant]
     Active Substance: MACITENTAN
  3. EFFEXOR [Concomitant]
     Active Substance: VENLAFAXINE HYDROCHLORIDE
  4. TORSEMIDE [Concomitant]
     Active Substance: TORSEMIDE
  5. OMEPRAZOLE [Concomitant]
     Active Substance: OMEPRAZOLE
  6. OMEPRAZOLE [Concomitant]
     Active Substance: OMEPRAZOLE
  7. MINERALS\VITAMINS [Concomitant]
     Active Substance: MINERALS\VITAMINS
  8. ASPIRIN [Concomitant]
     Active Substance: ASPIRIN
  9. OXYGEN [Concomitant]
     Active Substance: OXYGEN
  10. ROSUVASTATIN CALCIUM [Concomitant]
     Active Substance: ROSUVASTATIN CALCIUM
  11. KLONOPIN [Concomitant]
     Active Substance: CLONAZEPAM
  12. MIRTAZAPINE [Concomitant]
     Active Substance: MIRTAZAPINE
  13. SILDENAFIL CITRATE [Concomitant]
     Active Substance: SILDENAFIL CITRATE
  14. NABUMETONE [Concomitant]
     Active Substance: NABUMETONE
  15. XARELTO [Concomitant]
     Active Substance: RIVAROXABAN
  16. MIRTAZAPINE [Concomitant]
     Active Substance: MIRTAZAPINE

REACTIONS (1)
  - Presyncope [Unknown]
